FAERS Safety Report 6983529-1 (Version None)
Quarter: 2010Q3

REPORT INFORMATION
  Report Type: 
  Country: None (occurrence: None)
  Receive Date: 20100914
  Receipt Date: 20100914
  Transmission Date: 20110219
  Serious: Yes (Hospitalization)
  Sender: FDA-Public Use
  Company Number: None

PATIENT
  Age: 61 Year
  Sex: Male
  Weight: 116 kg

DRUGS (1)
  1. PAROXETINE HCL [Suspect]
     Indication: DEPRESSION
     Dosage: 20 MG EVERY DAY PO
     Route: 048
     Dates: start: 20100720, end: 20100823

REACTIONS (3)
  - CONFUSIONAL STATE [None]
  - DELUSION [None]
  - HALLUCINATION, VISUAL [None]
